FAERS Safety Report 6476954-9 (Version None)
Quarter: 2009Q4

REPORT INFORMATION
  Report Type: 
  Country: None (occurrence: None)
  Receive Date: 20091202
  Receipt Date: 20091119
  Transmission Date: 20100525
  Serious: Yes (Other)
  Sender: FDA-Public Use
  Company Number: 2009SP020588

PATIENT
  Age: 40 Year
  Sex: Female

DRUGS (2)
  1. IMPLANON [Suspect]
     Indication: CONTRACEPTION
     Dosage: 1 DF; 1 DF; SC
     Route: 058
     Dates: start: 20060724, end: 20090417
  2. PAROXETINE HCL [Concomitant]

REACTIONS (2)
  - AMENORRHOEA [None]
  - LIPOATROPHY [None]
